FAERS Safety Report 23849642 (Version 1)
Quarter: 2024Q2

REPORT INFORMATION
  Report Type: Spontaneous
  Country: US (occurrence: None)
  Receive Date: 20240511
  Receipt Date: 20240511
  Transmission Date: 20240716
  Serious: Yes (Life-Threatening, Hospitalization, Disabling, Other)
  Sender: FDA-Public Use
  Company Number: None

PATIENT
  Age: 40 Year
  Sex: Male
  Weight: 81 kg

DRUGS (12)
  1. FARXIGA [Suspect]
     Active Substance: DAPAGLIFLOZIN PROPANEDIOL
     Indication: Cardiac failure
     Dosage: TWICE A DAY
     Dates: start: 20230406, end: 20230611
  2. FARXIGA [Suspect]
     Active Substance: DAPAGLIFLOZIN PROPANEDIOL
     Indication: Diabetes mellitus
  3. ELIQUIS [Concomitant]
     Active Substance: APIXABAN
  4. ENTRESTO [Concomitant]
     Active Substance: SACUBITRIL\VALSARTAN
  5. LASIX [Concomitant]
     Active Substance: FUROSEMIDE
  6. Metoporal [Concomitant]
  7. LIPITOR [Concomitant]
     Active Substance: ATORVASTATIN CALCIUM
  8. Homalog [Concomitant]
  9. IRON [Concomitant]
     Active Substance: IRON
  10. METHADONE [Concomitant]
     Active Substance: METHADONE HYDROCHLORIDE
  11. GABAPENTIN [Concomitant]
     Active Substance: GABAPENTIN
  12. Adarax [Concomitant]

REACTIONS (3)
  - Skin bacterial infection [None]
  - Perineal infection [None]
  - Therapy cessation [None]

NARRATIVE: CASE EVENT DATE: 20230516
